FAERS Safety Report 19955201 (Version 1)
Quarter: 2021Q4

REPORT INFORMATION
  Report Type: Spontaneous
  Country: US (occurrence: US)
  Receive Date: 20211012
  Receipt Date: 20211012
  Transmission Date: 20220303
  Serious: Yes (Death)
  Sender: FDA-Public Use
  Company Number: None

PATIENT
  Age: 55 Year
  Sex: Male

DRUGS (1)
  1. REVLIMID [Suspect]
     Active Substance: LENALIDOMIDE
     Indication: Plasma cell myeloma
     Route: 048
     Dates: start: 20210804, end: 20210923

REACTIONS (8)
  - Thrombocytopenia [None]
  - Pneumonia [None]
  - Hypotension [None]
  - Lactic acidosis [None]
  - Anaemia [None]
  - Hypovolaemia [None]
  - Gastrointestinal haemorrhage [None]
  - Pulseless electrical activity [None]

NARRATIVE: CASE EVENT DATE: 20210923
